FAERS Safety Report 19069007 (Version 1)
Quarter: 2021Q1

REPORT INFORMATION
  Report Type: Spontaneous
  Country: US (occurrence: US)
  Receive Date: 20210329
  Receipt Date: 20210329
  Transmission Date: 20210420
  Serious: Yes (Other)
  Sender: FDA-Public Use
  Company Number: None

PATIENT
  Age: 15 Year
  Sex: Female
  Weight: 45 kg

DRUGS (4)
  1. MAGNESIUM [Concomitant]
     Active Substance: MAGNESIUM
  2. MYORISAN [Suspect]
     Active Substance: ISOTRETINOIN
     Indication: ACNE
     Dosage: ?          QUANTITY:1 CAPSULE(S);?
     Route: 048
     Dates: start: 20201003, end: 20201215
  3. LITHIUM ORATATE [Concomitant]
  4. CLOFAZIMINE. [Concomitant]
     Active Substance: CLOFAZIMINE

REACTIONS (4)
  - Mood swings [None]
  - Anger [None]
  - Tic [None]
  - Disturbance in attention [None]

NARRATIVE: CASE EVENT DATE: 20201215
